FAERS Safety Report 9220726 (Version 1)
Quarter: 2013Q2

REPORT INFORMATION
  Report Type: Spontaneous
  Country: US (occurrence: US)
  Receive Date: 20130409
  Receipt Date: 20130409
  Transmission Date: 20140414
  Serious: No
  Sender: FDA-Public Use
  Company Number: US-BAYER-2013-035687

PATIENT
  Age: 63 Year
  Sex: Female

DRUGS (10)
  1. MOTRIN [Concomitant]
     Dosage: 1 DF, TID
     Route: 048
  2. CIPRO [Suspect]
     Dosage: UNK
  3. ABILIFY [Concomitant]
     Indication: MAJOR DEPRESSION
     Dosage: 1 DF, NIGHTLY
     Route: 048
     Dates: start: 20130109
  4. CYMBALTA [Concomitant]
     Indication: JOINT INJURY
     Dosage: 1 DF, DAILY
     Route: 048
     Dates: start: 20120503
  5. ALLEGRA [Concomitant]
     Dosage: 1 DF, DAILY
     Route: 048
     Dates: start: 20121127
  6. HYDRODIURIL [Concomitant]
     Dosage: 1 DF, DAILY
     Route: 048
     Dates: start: 20121211
  7. ADVIL [Concomitant]
     Dosage: 1 DF, TID
     Route: 048
     Dates: start: 20120621
  8. PRILOSEC [Concomitant]
     Dosage: 1 DF, DAILY
     Route: 048
     Dates: start: 20130109
  9. KLOR-CON M20 [Concomitant]
     Dosage: 1 DF, BID
     Route: 048
     Dates: start: 20121012
  10. ZOCOR [Concomitant]
     Dosage: 1 DF, DAILY
     Route: 048
     Dates: start: 20121107

REACTIONS (2)
  - Drug hypersensitivity [None]
  - Constipation [None]
